FAERS Safety Report 5492293-7 (Version None)
Quarter: 2007Q4

REPORT INFORMATION
  Report Type: 
  Country: None (occurrence: None)
  Receive Date: 20071015
  Receipt Date: 20070711
  Transmission Date: 20080405
  Serious: No
  Sender: FDA-Public Use
  Company Number: 2007SP002521

PATIENT
  Age: 80 Year
  Sex: Male
  Weight: 81.6475 kg

DRUGS (5)
  1. LUNESTA [Suspect]
     Dosage: 2 MG;PRN;ORAL
     Route: 048
     Dates: start: 20070601
  2. ATORVASTATIN CALCIUM [Concomitant]
  3. ASPIRIN [Concomitant]
  4. WARFARIN SODIUM [Concomitant]
  5. PRILOSEC [Concomitant]

REACTIONS (2)
  - FATIGUE [None]
  - INSOMNIA [None]
